FAERS Safety Report 19393644 (Version 1)
Quarter: 2021Q2

REPORT INFORMATION
  Report Type: Spontaneous
  Country: US (occurrence: US)
  Receive Date: 20210608
  Receipt Date: 20210608
  Transmission Date: 20210717
  Serious: Yes (Other)
  Sender: FDA-Public Use
  Company Number: None

PATIENT
  Sex: Female
  Weight: 54 kg

DRUGS (1)
  1. CLOBETASOL OINTMENT [Suspect]
     Active Substance: CLOBETASOL
     Indication: DERMATITIS ATOPIC
     Route: 061
     Dates: start: 20200501, end: 20210601

REACTIONS (3)
  - Eczema [None]
  - Withdrawal syndrome [None]
  - Condition aggravated [None]
